FAERS Safety Report 11501637 (Version 3)
Quarter: 2015Q3

REPORT INFORMATION
  Report Type: Spontaneous
  Country: US (occurrence: US)
  Receive Date: 20150914
  Receipt Date: 20150924
  Transmission Date: 20151125
  Serious: No
  Sender: FDA-Public Use
  Company Number: US-ASTRAZENECA-2015SE87873

PATIENT
  Age: 19594 Day
  Sex: Male

DRUGS (3)
  1. VITAMIN B NOS [Concomitant]
     Active Substance: VITAMIN B
  2. VIMOVO [Suspect]
     Active Substance: ESOMEPRAZOLE MAGNESIUM\NAPROXEN
     Indication: NECK PAIN
     Dosage: 500 MG/20 MG, 1 TABLET IN THE MORNING AND 1 TABLET IN THE AFTERNOON
     Route: 048
     Dates: start: 20150902, end: 20150908
  3. VIMOVO [Suspect]
     Active Substance: ESOMEPRAZOLE MAGNESIUM\NAPROXEN
     Indication: BACK PAIN
     Dosage: 500 MG/20 MG, 1 TABLET IN THE MORNING AND 1 TABLET IN THE AFTERNOON
     Route: 048
     Dates: start: 20150902, end: 20150908

REACTIONS (5)
  - Pyrexia [Not Recovered/Not Resolved]
  - Headache [Not Recovered/Not Resolved]
  - Off label use [Unknown]
  - Pharyngitis streptococcal [Unknown]
  - Product use issue [Not Recovered/Not Resolved]

NARRATIVE: CASE EVENT DATE: 20150908
